FAERS Safety Report 7135150-2 (Version None)
Quarter: 2010Q4

REPORT INFORMATION
  Report Type: 
  Country: None (occurrence: None)
  Receive Date: 20101203
  Receipt Date: 20101124
  Transmission Date: 20110411
  Serious: Yes (Other)
  Sender: FDA-Public Use
  Company Number: US-PFIZER INC-2010114192

PATIENT
  Sex: Female
  Weight: 98 kg

DRUGS (4)
  1. LYRICA [Suspect]
     Indication: FIBROMYALGIA
     Dosage: 50 MG, 3X/DAY
     Route: 048
     Dates: start: 20100301
  2. NORCO [Concomitant]
     Dosage: UNK
  3. ZANAFLEX [Concomitant]
     Dosage: 2 MG, UNK
  4. ZANAFLEX [Concomitant]
     Dates: end: 20100101

REACTIONS (4)
  - DRY MOUTH [None]
  - HYPOAESTHESIA [None]
  - OEDEMA PERIPHERAL [None]
  - WEIGHT INCREASED [None]
